FAERS Safety Report 11799795 (Version 1)
Quarter: 2015Q4

REPORT INFORMATION
  Report Type: Report from Study
  Country: FR (occurrence: FR)
  Receive Date: 20151203
  Receipt Date: 20151203
  Transmission Date: 20160305
  Serious: Yes (Hospitalization, Other)
  Sender: FDA-Public Use
  Company Number: FR-BRISTOL-MYERS SQUIBB COMPANY-BMS-2015-052844

PATIENT
  Age: 82 Year
  Sex: Female
  Weight: 72 kg

DRUGS (5)
  1. LEVOTHYROX [Concomitant]
     Active Substance: LEVOTHYROXINE
     Indication: THYROID DISORDER
     Dosage: UNK
     Route: 065
  2. NIVOLUMAB [Suspect]
     Active Substance: NIVOLUMAB
     Dosage: 216 MG, UNK
     Route: 065
     Dates: start: 20151002
  3. NIVOLUMAB [Suspect]
     Active Substance: NIVOLUMAB
     Dosage: 216 MG, UNK
     Route: 065
     Dates: start: 20151016, end: 20151117
  4. NIVOLUMAB [Suspect]
     Active Substance: NIVOLUMAB
     Indication: MALIGNANT MELANOMA
     Dosage: 216 MG, UNK
     Route: 042
  5. NIVOLUMAB [Suspect]
     Active Substance: NIVOLUMAB
     Dosage: 213 MG, UNK
     Route: 065
     Dates: start: 20150818

REACTIONS (5)
  - Hepatocellular injury [Unknown]
  - Creatinine renal clearance abnormal [Unknown]
  - Arthritis bacterial [Recovered/Resolved]
  - Hypokalaemia [Unknown]
  - Blood electrolytes abnormal [Unknown]

NARRATIVE: CASE EVENT DATE: 20150925
